FAERS Safety Report 4960331-3 (Version None)
Quarter: 2006Q2

REPORT INFORMATION
  Report Type: 
  Country: None (occurrence: None)
  Receive Date: 20060403
  Receipt Date: 20050831
  Transmission Date: 20061013
  Serious: Yes (Hospitalization, Disabling)
  Sender: FDA-Public Use
  Company Number: FR-BRISTOL-MYERS SQUIBB COMPANY-13098058

PATIENT
  Age: 50 Year
  Sex: Female

DRUGS (1)
  1. ELISOR TABS [Suspect]
     Route: 048
     Dates: start: 20030601

REACTIONS (1)
  - TENDON RUPTURE [None]
